FAERS Safety Report 4445972-4 (Version None)
Quarter: 2004Q3

REPORT INFORMATION
  Report Type: 
  Country: None (occurrence: None)
  Receive Date: 20040910
  Receipt Date: 20040819
  Transmission Date: 20050211
  Serious: Yes (Hospitalization)
  Sender: FDA-Public Use
  Company Number: JP-MERCK-0408USA01623

PATIENT
  Age: 53 Year
  Sex: Female

DRUGS (7)
  1. FOSAMAX [Suspect]
     Indication: OSTEOPOROSIS
     Route: 048
     Dates: start: 20040815, end: 20040817
  2. CARVEDILOL [Concomitant]
     Indication: CARDIAC FAILURE CHRONIC
     Route: 048
     Dates: start: 20040804
  3. DIGOXIN [Concomitant]
     Indication: CARDIAC FAILURE CHRONIC
     Route: 048
  4. GASTER [Concomitant]
     Indication: GASTROINTESTINAL MUCOSAL DISORDER
     Route: 048
  5. LASIX [Concomitant]
     Indication: CARDIAC FAILURE CHRONIC
     Route: 048
  6. PREDONINE [Concomitant]
     Indication: TAKAYASU'S ARTERITIS
     Route: 048
     Dates: start: 20040804
  7. WARFARIN [Concomitant]
     Indication: ATRIAL FIBRILLATION
     Route: 048

REACTIONS (3)
  - INFECTION [None]
  - PYREXIA [None]
  - RASH [None]
